FAERS Safety Report 9288355 (Version 2)
Quarter: 2013Q3

REPORT INFORMATION
  Report Type: Spontaneous
  Country: DE (occurrence: DE)
  Receive Date: 20130514
  Receipt Date: 20130709
  Transmission Date: 20140515
  Serious: Yes (Other)
  Sender: FDA-Public Use
  Company Number: DE-PFIZER INC-2013143585

PATIENT
  Age: 34 Year
  Sex: Female
  Weight: 65 kg

DRUGS (6)
  1. LYRICA [Suspect]
     Indication: ANXIETY DISORDER
     Dosage: 50 MG - 300 MG DAILY
     Dates: start: 20080811, end: 200810
  2. LYRICA [Suspect]
     Dosage: TO 600 MG/D
     Route: 048
     Dates: start: 2009, end: 201209
  3. LYRICA [Suspect]
     Dosage: 600 MG, 1X/DAY
     Dates: start: 2010, end: 201209
  4. FLUOXETINE [Suspect]
     Indication: DEPRESSION
     Dosage: 20 MG AS DAILY DOSE
     Route: 048
     Dates: start: 2001, end: 201211
  5. HYPNOREX [Concomitant]
     Indication: DEPRESSION
     Dosage: 2 TABLETS AS DAILY DOSE
     Route: 048
     Dates: start: 2011
  6. TAVOR [Concomitant]
     Dosage: 0.5 TO 2 MG/D
     Route: 048
     Dates: start: 1999, end: 2011

REACTIONS (11)
  - Drug abuse [Recovered/Resolved]
  - Drug withdrawal syndrome [Recovered/Resolved]
  - Paraesthesia [Recovered/Resolved]
  - Pruritus [Recovered/Resolved]
  - Hot flush [Recovered/Resolved]
  - Chills [Recovered/Resolved]
  - Piloerection [Recovered/Resolved]
  - Anxiety [Recovered/Resolved]
  - Sleep disorder [Recovered/Resolved]
  - Palpitations [Recovered/Resolved]
  - Elevated mood [Unknown]
